FAERS Safety Report 8923761 (Version 1)
Quarter: 2012Q4

REPORT INFORMATION
  Report Type: 
  Country: US (occurrence: US)
  Receive Date: 20121126
  Receipt Date: 20121126
  Transmission Date: 20130627
  Serious: Yes (Hospitalization, Other)
  Sender: FDA-Public Use
  Company Number: US-BAYER-2012-121830

PATIENT
  Age: 29 Year
  Sex: Female
  Weight: 108 kg

DRUGS (9)
  1. YASMIN [Suspect]
  2. OCELLA [Suspect]
  3. IBUPROFEN [Concomitant]
     Dosage: 800 mg, BID
     Route: 048
  4. DELSOM [Concomitant]
  5. MUCINEX [Concomitant]
  6. PERCOCET [Concomitant]
  7. NAPROXEN [Concomitant]
  8. CEPHALEXIN [Concomitant]
  9. VICODIN [Concomitant]
     Dosage: UNK; twice daily as needed

REACTIONS (3)
  - Thrombophlebitis superficial [None]
  - Deep vein thrombosis [None]
  - Pulmonary embolism [None]
